FAERS Safety Report 4633453-4 (Version None)
Quarter: 2005Q2

REPORT INFORMATION
  Report Type: 
  Country: None (occurrence: None)
  Receive Date: 20050408
  Receipt Date: 20050328
  Transmission Date: 20051028
  Serious: Yes (Hospitalization)
  Sender: FDA-Public Use
  Company Number: HQWYE540430MAR05

PATIENT
  Age: 86 Year
  Sex: Female
  Weight: 50.85 kg

DRUGS (4)
  1. INDERAL LA [Suspect]
     Indication: TREMOR
     Dosage: 80 MG 1X PER 1 DAY, ORAL
     Route: 048
     Dates: start: 20040101, end: 20050326
  2. ZETIA [Concomitant]
  3. LIPITOR [Concomitant]
  4. ACTONEL [Concomitant]

REACTIONS (6)
  - ATRIOVENTRICULAR BLOCK [None]
  - BLOOD PRESSURE FLUCTUATION [None]
  - BLOOD PRESSURE SYSTOLIC INCREASED [None]
  - BRADYCARDIA [None]
  - DIZZINESS [None]
  - VISION BLURRED [None]
